FAERS Safety Report 19569464 (Version 1)
Quarter: 2021Q3

REPORT INFORMATION
  Report Type: Spontaneous
  Country: US (occurrence: US)
  Receive Date: 20210716
  Receipt Date: 20210716
  Transmission Date: 20211014
  Serious: Yes (Other)
  Sender: FDA-Public Use
  Company Number: US-PFIZER INC-2021831669

PATIENT
  Age: 52 Year
  Sex: Female
  Weight: 58.97 kg

DRUGS (6)
  1. VANCOMYCIN HCL [Suspect]
     Active Substance: VANCOMYCIN HYDROCHLORIDE
     Dosage: UNK
  2. CLINDAMYCIN HCL [Suspect]
     Active Substance: CLINDAMYCIN HYDROCHLORIDE
     Dosage: UNK
  3. VANCOMYCIN HCL [Suspect]
     Active Substance: VANCOMYCIN HYDROCHLORIDE
     Dosage: UNK
     Dates: start: 20200910
  4. VANCOMYCIN HCL [Suspect]
     Active Substance: VANCOMYCIN HYDROCHLORIDE
     Dosage: UNK
  5. VANCOMYCIN HCL [Suspect]
     Active Substance: VANCOMYCIN HYDROCHLORIDE
     Dosage: UNK
  6. VANCOMYCIN HCL [Suspect]
     Active Substance: VANCOMYCIN HYDROCHLORIDE
     Dosage: UNK
     Dates: end: 202106

REACTIONS (11)
  - Nervousness [Not Recovered/Not Resolved]
  - Ear pain [Not Recovered/Not Resolved]
  - Mood altered [Not Recovered/Not Resolved]
  - Bladder pain [Not Recovered/Not Resolved]
  - Asthenia [Not Recovered/Not Resolved]
  - Gastric infection [Not Recovered/Not Resolved]
  - Urinary tract pain [Not Recovered/Not Resolved]
  - Chills [Not Recovered/Not Resolved]
  - Nerve injury [Not Recovered/Not Resolved]
  - Tinnitus [Not Recovered/Not Resolved]
  - Tremor [Not Recovered/Not Resolved]

NARRATIVE: CASE EVENT DATE: 20200910
